FAERS Safety Report 6115903-X (Version None)
Quarter: 2009Q1

REPORT INFORMATION
  Report Type: 
  Country: None (occurrence: None)
  Receive Date: 20090311
  Receipt Date: 20090227
  Transmission Date: 20090719
  Serious: Yes (Other)
  Sender: FDA-Public Use
  Company Number: 230108K09BRA

PATIENT
  Sex: Female

DRUGS (2)
  1. REBIF [Suspect]
     Indication: RELAPSING-REMITTING MULTIPLE SCLEROSIS
     Dosage: 44 MCG, 1 IN 1 WEEKS
     Dates: start: 20070416
  2. CORTICOSTEROID (CORTICOSTEROID NOS) [Suspect]
     Indication: PROPHYLAXIS
     Dosage: 1 IN 2 MONTHS

REACTIONS (1)
  - OSTEONECROSIS [None]
